FAERS Safety Report 18097980 (Version 1)
Quarter: 2020Q3

REPORT INFORMATION
  Report Type: Spontaneous
  Country: US (occurrence: US)
  Receive Date: 20200731
  Receipt Date: 20200731
  Transmission Date: 20201103
  Serious: Yes (Disabling)
  Sender: FDA-Public Use
  Company Number: None

PATIENT
  Age: 55 Year
  Sex: Female

DRUGS (2)
  1. INVEGA [Concomitant]
     Active Substance: PALIPERIDONE
  2. HALDOL DECANOATE [Suspect]
     Active Substance: HALOPERIDOL DECANOATE
     Indication: PSYCHOTIC DISORDER
     Dosage: ?          QUANTITY:1 INJECTION(S);OTHER FREQUENCY:EVERY 2 WEEKS;?
     Route: 030

REACTIONS (10)
  - Paraesthesia [None]
  - Muscle twitching [None]
  - Middle insomnia [None]
  - Chest pain [None]
  - Myalgia [None]
  - Musculoskeletal stiffness [None]
  - Hypoaesthesia [None]
  - Decreased appetite [None]
  - Headache [None]
  - Amnesia [None]

NARRATIVE: CASE EVENT DATE: 20200401
